FAERS Safety Report 14225328 (Version 4)
Quarter: 2017Q4

REPORT INFORMATION
  Report Type: Spontaneous
  Country: US (occurrence: US)
  Receive Date: 20171127
  Receipt Date: 20171214
  Transmission Date: 20180321
  Serious: Yes (Other)
  Sender: FDA-Public Use
  Company Number: US-PFIZER INC-2017505533

PATIENT
  Age: 77 Year
  Sex: Female

DRUGS (1)
  1. SUTENT [Suspect]
     Active Substance: SUNITINIB MALATE
     Dosage: 15 MG, UNK
     Dates: start: 20171114, end: 201711

REACTIONS (5)
  - Gait inability [Unknown]
  - Condition aggravated [Unknown]
  - Asthenia [Unknown]
  - Pain in extremity [Unknown]
  - Immobile [Unknown]

NARRATIVE: CASE EVENT DATE: 201711
